FAERS Safety Report 9593243 (Version 2)
Quarter: 2013Q4

REPORT INFORMATION
  Report Type: Spontaneous
  Country: US (occurrence: US)
  Receive Date: 20131004
  Receipt Date: 20131004
  Transmission Date: 20140711
  Serious: No
  Sender: FDA-Public Use
  Company Number: US-PURDUE-USA-2012-0089761

PATIENT
  Sex: Female

DRUGS (1)
  1. BUTRANS [Suspect]
     Indication: ANALGESIC THERAPY
     Dosage: 10 MCG/HR, UNK
     Route: 062
     Dates: start: 20120629

REACTIONS (7)
  - Wrong technique in drug usage process [Unknown]
  - Drug effect decreased [Unknown]
  - Drug ineffective [Unknown]
  - Inadequate analgesia [Unknown]
  - Product adhesion issue [Unknown]
  - Application site erosion [Unknown]
  - Application site rash [Unknown]
